FAERS Safety Report 5528401-9 (Version None)
Quarter: 2007Q4

REPORT INFORMATION
  Report Type: 
  Country: None (occurrence: None)
  Receive Date: 20071128
  Receipt Date: 20071119
  Transmission Date: 20080405
  Serious: Yes (Hospitalization)
  Sender: FDA-Public Use
  Company Number: US-WYE-H01342707

PATIENT
  Age: 50 Year
  Sex: Female

DRUGS (2)
  1. PREMPRO [Suspect]
     Indication: HORMONE THERAPY
     Dosage: FREQUENCY NOT SPECIFIED
     Route: 048
     Dates: start: 19770101, end: 20071105
  2. PREMPRO [Suspect]
     Dosage: FREQUENCY NOT SPECIFIED
     Route: 048
     Dates: start: 20071101

REACTIONS (4)
  - DRUG WITHDRAWAL SYNDROME [None]
  - ENERGY INCREASED [None]
  - INSOMNIA [None]
  - MANIA [None]
